FAERS Safety Report 9025096 (Version 1)
Quarter: 2013Q1

REPORT INFORMATION
  Report Type: Spontaneous
  Country: US (occurrence: US)
  Receive Date: 20130121
  Receipt Date: 20130121
  Transmission Date: 20140127
  Serious: Yes (Death, Other)
  Sender: FDA-Public Use
  Company Number: US-UCBSA-074944

PATIENT
  Age: 29 Year
  Sex: Male

DRUGS (2)
  1. HYDROCODONE /ACETAMINOPHEN [Suspect]
     Dosage: PARENTERAL
  2. MORPHINE [Suspect]
     Dosage: PARENTERAL

REACTIONS (2)
  - Drug abuse [Fatal]
  - Incorrect route of drug administration [Unknown]
